FAERS Safety Report 17186540 (Version 1)
Quarter: 2019Q4

REPORT INFORMATION
  Report Type: Spontaneous
  Country: US (occurrence: US)
  Receive Date: 20191220
  Receipt Date: 20191220
  Transmission Date: 20200122
  Serious: Yes (Other)
  Sender: FDA-Public Use
  Company Number: US-ASSERTIO THERAPEUTICS, INC.-US-2019DEP001319

PATIENT
  Sex: Male

DRUGS (1)
  1. GRALISE [Suspect]
     Active Substance: GABAPENTIN
     Indication: MULTIPLE SCLEROSIS
     Dosage: 600 MG, QD
     Route: 048

REACTIONS (5)
  - Memory impairment [Not Recovered/Not Resolved]
  - Drug titration error [Unknown]
  - Pain [Not Recovered/Not Resolved]
  - Drug ineffective for unapproved indication [Unknown]
  - Cognitive disorder [Not Recovered/Not Resolved]
